FAERS Safety Report 5419331-1 (Version None)
Quarter: 2007Q3

REPORT INFORMATION
  Report Type: 
  Country: None (occurrence: None)
  Receive Date: 20070820
  Receipt Date: 20070815
  Transmission Date: 20080115
  Serious: Yes (Hospitalization)
  Sender: FDA-Public Use
  Company Number: US-BRISTOL-MYERS SQUIBB COMPANY-13878624

PATIENT
  Age: 76 Year
  Sex: Male
  Weight: 94 kg

DRUGS (35)
  1. CETUXIMAB [Suspect]
     Indication: NON-SMALL CELL LUNG CANCER
     Dosage: 564 MG X1 IV HAD BEEN TAKEN ON 06/27/2007.
     Route: 042
     Dates: start: 20070718, end: 20070718
  2. PACLITAXEL [Suspect]
     Indication: NON-SMALL CELL LUNG CANCER
     Route: 042
     Dates: start: 20070718, end: 20070718
  3. CARBOPLATIN [Suspect]
     Indication: NON-SMALL CELL LUNG CANCER
     Route: 042
     Dates: start: 20070718, end: 20070718
  4. BEVACIZUMAB [Suspect]
     Indication: NON-SMALL CELL LUNG CANCER
     Route: 042
     Dates: start: 20070705, end: 20070705
  5. PREDNISONE [Concomitant]
     Indication: COUGH
  6. PREDNISONE [Concomitant]
     Indication: SARCOIDOSIS
  7. SPIRIVA [Concomitant]
     Indication: COUGH
  8. ALLEGRA D 24 HOUR [Concomitant]
     Indication: SEASONAL ALLERGY
     Dates: start: 20070401
  9. MEGESTROL ACETATE [Concomitant]
     Indication: ANOREXIA
     Dosage: 1 DOSAGE FORM = 1 TSP
     Route: 048
     Dates: start: 20070604
  10. TYLENOL [Concomitant]
     Indication: PAIN
     Dates: start: 20070606
  11. VASELINE [Concomitant]
     Indication: DRY SKIN
     Dates: start: 20070611
  12. COMPAZINE [Concomitant]
     Indication: NAUSEA
     Dosage: Q4-6 HRS
     Dates: start: 20070724
  13. DECADRON [Concomitant]
     Dates: start: 20070601
  14. ANZEMET [Concomitant]
     Indication: NAUSEA
     Dates: start: 20070628
  15. OXYCODONE HCL [Concomitant]
     Dates: start: 20070627
  16. IMODIUM [Concomitant]
     Indication: DIARRHOEA
     Dates: start: 20070628
  17. AVELOX [Concomitant]
     Route: 048
     Dates: start: 20070627
  18. COLACE [Concomitant]
     Indication: CONSTIPATION
     Dates: start: 20070630
  19. DULCOLAX [Concomitant]
     Indication: CONSTIPATION
     Dates: start: 20070701
  20. ATIVAN [Concomitant]
     Indication: INSOMNIA
     Dates: start: 20070620, end: 20070101
  21. ATIVAN [Concomitant]
     Dosage: QHS IS NOT FOUND IN THE DOSING FREQUENCY LIST.
     Dates: start: 20070705
  22. ARANESP [Concomitant]
     Indication: ANAEMIA
     Dates: start: 20070627
  23. MULTI-VITAMIN [Concomitant]
     Indication: VITAMIN SUPPLEMENTATION
     Dates: start: 19870101
  24. ASCORBIC ACID [Concomitant]
     Indication: VITAMIN SUPPLEMENTATION
     Dates: start: 19870101
  25. BENADRYL [Concomitant]
     Indication: RASH
     Dates: start: 20070711
  26. SENOKOT [Concomitant]
     Indication: CONSTIPATION
     Dates: start: 20070713
  27. BLISTEX [Concomitant]
     Indication: NASAL DRYNESS
     Dates: start: 20070714
  28. SODIUM CHLORIDE [Concomitant]
     Indication: NASAL DRYNESS
     Dates: start: 20070717
  29. LEXAPRO [Concomitant]
     Indication: DEPRESSION
     Dates: start: 20070718
  30. METAMUCIL [Concomitant]
     Indication: CONSTIPATION
     Dates: start: 20070720
  31. GLYCERIN [Concomitant]
     Indication: CONSTIPATION
     Dates: start: 20070720
  32. EUCERIN [Concomitant]
     Indication: DRY SKIN
     Dates: start: 20070711
  33. ENSURE [Concomitant]
     Indication: WEIGHT DECREASED
     Dates: start: 20070712
  34. HERBAL MIXTURE [Concomitant]
  35. E-MYCIN [Concomitant]
     Dates: start: 20070720, end: 20070730

REACTIONS (1)
  - DEHYDRATION [None]
